FAERS Safety Report 16421180 (Version 1)
Quarter: 2019Q2

REPORT INFORMATION
  Report Type: Spontaneous
  Country: US (occurrence: US)
  Receive Date: 20190612
  Receipt Date: 20190612
  Transmission Date: 20190711
  Serious: No
  Sender: FDA-Public Use
  Company Number: US-CELGENEUS-USA-20190602242

PATIENT
  Age: 61 Year
  Sex: Female

DRUGS (2)
  1. DUPIXENT [Concomitant]
     Active Substance: DUPILUMAB
     Indication: PSORIASIS
     Dosage: 300 MILLIGRAM
     Route: 065
     Dates: start: 20180621
  2. OTEZLA [Suspect]
     Active Substance: APREMILAST
     Indication: PSORIASIS
     Dosage: 60 MILLIGRAM
     Route: 048
     Dates: start: 20190529

REACTIONS (3)
  - Nasal congestion [Unknown]
  - Sneezing [Unknown]
  - Vision blurred [Unknown]

NARRATIVE: CASE EVENT DATE: 20190529
